FAERS Safety Report 5820484-1 (Version None)
Quarter: 2008Q3

REPORT INFORMATION
  Report Type: 
  Country: None (occurrence: None)
  Receive Date: 20080724
  Receipt Date: 20070810
  Transmission Date: 20090109
  Serious: No
  Sender: FDA-Public Use
  Company Number: A0669504A

PATIENT

DRUGS (1)
  1. AVANDIA [Suspect]
     Indication: DRUG USE FOR UNKNOWN INDICATION
     Dosage: 2MG PER DAY
     Route: 048

REACTIONS (1)
  - OEDEMA [None]
